FAERS Safety Report 5162540-X (Version None)
Quarter: 2006Q4

REPORT INFORMATION
  Report Type: 
  Country: None (occurrence: None)
  Receive Date: 20061201
  Receipt Date: 20061124
  Transmission Date: 20070319
  Serious: Yes (Hospitalization)
  Sender: FDA-Public Use
  Company Number: US-BOEHRINGER INGELHEIM PHARMACEUTICALS, INC.-2006-DE-06230GD

PATIENT
  Age: 4 Year

DRUGS (1)
  1. CLONIDINE [Suspect]
     Dosage: A TEASPOONFUL (OF  25 MG/ML)
     Route: 048

REACTIONS (3)
  - COMA [None]
  - DRUG DISPENSING ERROR [None]
  - DRUG TOXICITY [None]
